FAERS Safety Report 5566084-2 (Version None)
Quarter: 2007Q4

REPORT INFORMATION
  Report Type: 
  Country: None (occurrence: None)
  Receive Date: 20071217
  Receipt Date: 20071217
  Transmission Date: 20080405
  Serious: Yes (Other)
  Sender: FDA-Public Use
  Company Number: None

PATIENT
  Sex: Female
  Weight: 66.2252 kg

DRUGS (7)
  1. HUMIRA [Suspect]
     Indication: UVEITIS
     Dosage: 40MG  EVERY TWO WEEKS  SQ
     Route: 058
     Dates: start: 20070110, end: 20070314
  2. HUMIRA [Suspect]
     Indication: UVEITIS
     Dosage: 40MG  EVERY TWO WEEKS  SQ
     Route: 058
     Dates: start: 20071030, end: 20071030
  3. VERAPAMIL [Concomitant]
  4. HYDROCHLOROTHIAZIDE [Concomitant]
  5. ZOCOR [Concomitant]
  6. FOSAMEX [Concomitant]
  7. STEROID EYE DROPS [Concomitant]

REACTIONS (2)
  - CONDITION AGGRAVATED [None]
  - THROMBOCYTOPENIA [None]
